FAERS Safety Report 13418142 (Version 5)
Quarter: 2017Q4

REPORT INFORMATION
  Report Type: Report from Study
  Country: FR (occurrence: FR)
  Receive Date: 20170407
  Receipt Date: 20171016
  Transmission Date: 20180320
  Serious: Yes (Death, Hospitalization, Other)
  Sender: FDA-Public Use
  Company Number: FR-BRISTOL-MYERS SQUIBB COMPANY-BMS-2017-029732

PATIENT
  Age: 72 Year
  Sex: Male
  Weight: 79 kg

DRUGS (5)
  1. HEPSERA [Concomitant]
     Active Substance: ADEFOVIR DIPIVOXIL
     Indication: HEPATITIS B VIRUS TEST
     Dosage: 10 MG, QD
     Route: 065
     Dates: start: 20020807, end: 20170317
  2. NEXAVAR [Concomitant]
     Active Substance: SORAFENIB
     Indication: HEPATOCELLULAR CARCINOMA
     Dosage: 400 MG, QD
     Route: 065
     Dates: start: 201310, end: 2016
  3. COAPROVEL [Concomitant]
     Active Substance: HYDROCHLOROTHIAZIDE\IRBESARTAN
     Indication: HYPERTENSION
     Dosage: 1 DF=300 MG/12.5 MNG, QD
     Route: 065
     Dates: end: 20170317
  4. KARDEGIC [Concomitant]
     Active Substance: ASPIRIN DL-LYSINE
     Indication: PLATELET AGGREGATION
     Dosage: 160 MG, QD
     Route: 065
     Dates: end: 20170317
  5. ENTECAVIR. [Suspect]
     Active Substance: ENTECAVIR
     Indication: HEPATITIS B
     Dosage: 1 MG, QD
     Route: 065
     Dates: start: 20061207, end: 20170317

REACTIONS (11)
  - Hepatocellular carcinoma [Unknown]
  - Loss of consciousness [Unknown]
  - Balance disorder [Unknown]
  - General physical health deterioration [Fatal]
  - Portal vein thrombosis [Unknown]
  - Metastases to lung [Unknown]
  - Cancer surgery [Unknown]
  - Vertigo [Unknown]
  - Therapeutic embolisation [Unknown]
  - Skin cancer [Unknown]
  - Fall [Unknown]

NARRATIVE: CASE EVENT DATE: 201002
